FAERS Safety Report 23321511 (Version 1)
Quarter: 2023Q4

REPORT INFORMATION
  Report Type: Spontaneous
  Country: CA (occurrence: CA)
  Receive Date: 20231220
  Receipt Date: 20231220
  Transmission Date: 20240110
  Serious: Yes (Hospitalization)
  Sender: FDA-Public Use
  Company Number: CA-PFIZER INC-202300446677

PATIENT
  Age: 71 Year
  Sex: Male
  Weight: 77 kg

DRUGS (1)
  1. ADALIMUMAB [Suspect]
     Active Substance: ADALIMUMAB\ISOPROPYL ALCOHOL
     Indication: Ankylosing spondylitis
     Dosage: 40.0 MG, 1 EVERY 2 WEEKS
     Route: 058

REACTIONS (3)
  - Atrial fibrillation [Recovering/Resolving]
  - Left ventricular failure [Recovering/Resolving]
  - Product substitution [Recovering/Resolving]
